FAERS Safety Report 14118397 (Version 2)
Quarter: 2017Q4

REPORT INFORMATION
  Report Type: Spontaneous
  Country: IT (occurrence: IT)
  Receive Date: 20171024
  Receipt Date: 20171101
  Transmission Date: 20180321
  Serious: Yes (Other)
  Sender: FDA-Public Use
  Company Number: IT-CIPLA LTD.-2017IT18505

PATIENT

DRUGS (6)
  1. CISPLATIN. [Suspect]
     Active Substance: CISPLATIN
     Indication: CHOLANGIOCARCINOMA
     Dosage: 25 MG/M2, ON DAYS 1 AND 8 EVERY 3 WEEKS
     Route: 065
     Dates: start: 201511, end: 201601
  2. GEMCITABINE [Suspect]
     Active Substance: GEMCITABINE\GEMCITABINE HYDROCHLORIDE
     Dosage: UNK, DOSES REDUCED BY 10%
     Route: 065
  3. GEMCITABINE [Suspect]
     Active Substance: GEMCITABINE\GEMCITABINE HYDROCHLORIDE
     Indication: CHOLANGIOCARCINOMA
     Dosage: 1000 MG/M2, ON DAYS 1 AND 8 EVERY 3 WEEKS
     Route: 065
  4. GEMCITABINE [Suspect]
     Active Substance: GEMCITABINE\GEMCITABINE HYDROCHLORIDE
     Dosage: 1000 MG/M2, 2 CYCLICAL, ON DAYS 1, 8, AND 15 EVERY 4 WEEKS
     Route: 065
     Dates: start: 201604, end: 2016
  5. CISPLATIN. [Suspect]
     Active Substance: CISPLATIN
     Dosage: UNK, DOSES REDUCED BY 10%
     Route: 065
  6. GEMCITABINE [Suspect]
     Active Substance: GEMCITABINE\GEMCITABINE HYDROCHLORIDE
     Dosage: UNK, DOSES REDUCED BY 20%
     Route: 065

REACTIONS (4)
  - Thrombocytopenia [Unknown]
  - Vomiting [Unknown]
  - Constipation [Unknown]
  - Lymphoedema [Recovered/Resolved]

NARRATIVE: CASE EVENT DATE: 2016
